FAERS Safety Report 14180894 (Version 4)
Quarter: 2018Q4

REPORT INFORMATION
  Report Type: Report from Study
  Country: US (occurrence: US)
  Receive Date: 20171110
  Receipt Date: 20181210
  Transmission Date: 20190204
  Serious: No
  Sender: FDA-Public Use
  Company Number: PHEH2017US036329

PATIENT
  Sex: Female

DRUGS (1)
  1. COSENTYX [Suspect]
     Active Substance: SECUKINUMAB
     Indication: PSORIASIS
     Dosage: UNK
     Route: 058

REACTIONS (7)
  - Bronchitis [Unknown]
  - Malaise [Unknown]
  - Upper respiratory tract infection [Unknown]
  - Rash macular [Unknown]
  - Gait disturbance [Unknown]
  - Cough [Unknown]
  - Sputum discoloured [Unknown]
